FAERS Safety Report 16072733 (Version 5)
Quarter: 2019Q4

REPORT INFORMATION
  Report Type: Spontaneous
  Country: US (occurrence: US)
  Receive Date: 20190314
  Receipt Date: 20191003
  Transmission Date: 20200122
  Serious: No
  Sender: FDA-Public Use
  Company Number: US-PFIZER INC-2019106145

PATIENT
  Age: 42 Year
  Sex: Female

DRUGS (12)
  1. BIOTENE DRY MOUTH [SODIUM FLUOROPHOSPHATE] [Concomitant]
  2. PREVNAR [Concomitant]
     Active Substance: PNEUMOCOCCAL 7-VALENT CONJUGATE VACCINE (DIPHTHERIA CRM197 PROTEIN)
     Dosage: UNK
  3. XELJANZ XR [Suspect]
     Active Substance: TOFACITINIB CITRATE
     Indication: RHEUMATOID ARTHRITIS
     Dosage: 11 MG, DAILY
     Route: 048
     Dates: start: 201809
  4. XELJANZ XR [Suspect]
     Active Substance: TOFACITINIB CITRATE
     Dosage: 11 MG, DAILY
     Route: 048
     Dates: start: 201810
  5. NALTREXONE [Concomitant]
     Active Substance: NALTREXONE
  6. ORTHO-NOVUM [Concomitant]
     Active Substance: ETHINYL ESTRADIOL\NORETHINDRONE
  7. VITAMIN D3 [Concomitant]
     Active Substance: CHOLECALCIFEROL
  8. ETODOLAC. [Concomitant]
     Active Substance: ETODOLAC
  9. LOSARTAN AND HYDROCHLOROTHIAZIDE [Concomitant]
     Active Substance: HYDROCHLOROTHIAZIDE\LOSARTAN POTASSIUM
  10. FOLIC ACID ALMUS [Concomitant]
     Active Substance: FOLIC ACID
  11. HYZAAR [Concomitant]
     Active Substance: HYDROCHLOROTHIAZIDE\LOSARTAN POTASSIUM
  12. DICYCLOMINE [Concomitant]
     Active Substance: DICYCLOMINE HYDROCHLORIDE

REACTIONS (11)
  - C-reactive protein increased [Unknown]
  - Therapeutic product effect incomplete [Unknown]
  - Paraesthesia [Unknown]
  - Neutrophil count increased [Unknown]
  - Red blood cell sedimentation rate increased [Unknown]
  - Peripheral swelling [Unknown]
  - Swelling face [Unknown]
  - Hypoaesthesia [Unknown]
  - Lymphocyte count increased [Unknown]
  - Diarrhoea [Unknown]
  - Joint swelling [Unknown]
